FAERS Safety Report 7715202-6 (Version None)
Quarter: 2011Q3

REPORT INFORMATION
  Report Type: 
  Country: None (occurrence: None)
  Receive Date: 20110829
  Receipt Date: 20110819
  Transmission Date: 20111222
  Serious: Yes (Other)
  Sender: FDA-Public Use
  Company Number: PHFR2011GB02503

PATIENT
  Sex: Male
  Weight: 90.2 kg

DRUGS (3)
  1. PIRENZEPINE [Concomitant]
     Route: 048
  2. CLOZAPINE [Suspect]
     Indication: SCHIZOPHRENIA
     Dosage: 200 MG, BID
     Route: 048
     Dates: start: 20100805
  3. LACTULOSE [Concomitant]
     Dosage: 20 ML, BID

REACTIONS (3)
  - PLATELET COUNT DECREASED [None]
  - CONSTIPATION [None]
  - HAEMOGLOBIN INCREASED [None]
